FAERS Safety Report 8098818-X (Version None)
Quarter: 2012Q1

REPORT INFORMATION
  Report Type: 
  Country: None (occurrence: None)
  Receive Date: 20120129
  Receipt Date: 20110926
  Transmission Date: 20120608
  Serious: No
  Sender: FDA-Public Use
  Company Number: US-ABBOTT-11P-163-0857571-00

PATIENT
  Age: 57 Year
  Sex: Male

DRUGS (3)
  1. METHOTREXATE [Concomitant]
     Route: 048
  2. METHOTREXATE [Suspect]
     Indication: PRODUCT USED FOR UNKNOWN INDICATION
  3. HUMIRA [Suspect]
     Indication: PSORIATIC ARTHROPATHY
     Dates: start: 20100901

REACTIONS (6)
  - ORAL INFECTION [None]
  - VIRAL INFECTION [None]
  - EAR INFECTION [None]
  - BURNING SENSATION [None]
  - SINUSITIS [None]
  - ORAL DISORDER [None]
